FAERS Safety Report 22724470 (Version 2)
Quarter: 2023Q4

REPORT INFORMATION
  Report Type: Spontaneous
  Country: US (occurrence: US)
  Receive Date: 20230719
  Receipt Date: 20231016
  Transmission Date: 20240109
  Serious: No
  Sender: FDA-Public Use
  Company Number: US-BRISTOL-MYERS SQUIBB COMPANY-2023-098766

PATIENT
  Age: 87 Year
  Sex: Female
  Weight: 58.51 kg

DRUGS (2)
  1. OPDIVO [Suspect]
     Active Substance: NIVOLUMAB
     Indication: Mesothelioma
     Dosage: DOSE : 2;     FREQ : EVERY 3 WEEKS?STRENGTH AND PRESENTATION OF THE AE : 360 MG (240 MG VIAL + 120 M
     Route: 042
     Dates: start: 20230620
  2. YERVOY [Suspect]
     Active Substance: IPILIMUMAB
     Indication: Mesothelioma
     Dates: start: 20230620

REACTIONS (3)
  - Back pain [Unknown]
  - Cough [Unknown]
  - Chills [Unknown]

NARRATIVE: CASE EVENT DATE: 20230711
